FAERS Safety Report 7056439-1 (Version None)
Quarter: 2010Q4

REPORT INFORMATION
  Report Type: 
  Country: None (occurrence: None)
  Receive Date: 20101021
  Receipt Date: 20101011
  Transmission Date: 20110411
  Serious: Yes (Hospitalization, Other)
  Sender: FDA-Public Use
  Company Number: US-ROCHE-721997

PATIENT
  Sex: Male
  Weight: 81.6 kg

DRUGS (2)
  1. ACCUTANE [Suspect]
     Indication: ACNE
     Route: 048
     Dates: start: 20010902, end: 20020601
  2. MARIJUANA [Concomitant]
     Dates: start: 19990101, end: 20030101

REACTIONS (7)
  - ABDOMINAL PAIN UPPER [None]
  - ANAL FISTULA [None]
  - CROHN'S DISEASE [None]
  - DEPRESSION [None]
  - HAEMATOCHEZIA [None]
  - ILEAL STENOSIS [None]
  - INTESTINAL OBSTRUCTION [None]
